FAERS Safety Report 22174470 (Version 1)
Quarter: 2023Q2

REPORT INFORMATION
  Report Type: Spontaneous
  Country: US (occurrence: US)
  Receive Date: 20230405
  Receipt Date: 20230405
  Transmission Date: 20230721
  Serious: No
  Sender: FDA-Public Use
  Company Number: US-009507513-2303USA007322

PATIENT
  Age: 44 Year
  Sex: Female

DRUGS (1)
  1. DELSTRIGO [Suspect]
     Active Substance: DORAVIRINE\LAMIVUDINE\TENOFOVIR DISOPROXIL FUMARATE
     Indication: HIV test positive
     Dosage: UNK
     Route: 048
     Dates: start: 202108

REACTIONS (2)
  - Weight decreased [Unknown]
  - Weight increased [Unknown]
